FAERS Safety Report 8866095 (Version 1)
Quarter: 2012Q4

REPORT INFORMATION
  Report Type: 
  Country: DE (occurrence: DE)
  Receive Date: 20121025
  Receipt Date: 20121025
  Transmission Date: 20130627
  Serious: Yes (Other)
  Sender: FDA-Public Use
  Company Number: DE-MYLANLABS-2012S1021456

PATIENT
  Age: 29 Year
  Sex: Female
  Weight: 73 kg

DRUGS (3)
  1. SERTRALINE [Suspect]
     Indication: DEPRESSION
     Dosage: 100 [mg/d ]/ after week 8: 50 mg/d
     Route: 048
     Dates: start: 20100101
  2. SERTRALINE [Suspect]
     Indication: DEPRESSION
     Route: 048
     Dates: end: 20111106
  3. FOLIO FORTE [Concomitant]
     Indication: PROPHYLAXIS OF NEURAL TUBE DEFECT
     Dosage: 0.8 [mg/d ]
     Route: 048
     Dates: start: 20110213, end: 20111106

REACTIONS (4)
  - Streptococcus test positive [Recovered/Resolved]
  - Exposure during pregnancy [Unknown]
  - Nasopharyngitis [Unknown]
  - Rhinitis [Unknown]
